FAERS Safety Report 5106234-5 (Version None)
Quarter: 2006Q3

REPORT INFORMATION
  Report Type: 
  Country: None (occurrence: None)
  Receive Date: 20060918
  Receipt Date: 20060911
  Transmission Date: 20061208
  Serious: Yes (Hospitalization)
  Sender: FDA-Public Use
  Company Number: US-BRISTOL-MYERS SQUIBB COMPANY-13505961

PATIENT
  Age: 50 Year
  Sex: Female
  Weight: 61 kg

DRUGS (18)
  1. ERBITUX [Suspect]
     Indication: CERVIX CARCINOMA
     Route: 042
     Dates: start: 20060803, end: 20060803
  2. CISPLATIN [Suspect]
     Indication: CERVIX CARCINOMA
  3. RADIATION THERAPY [Suspect]
     Indication: CERVIX CARCINOMA
     Dates: start: 20060728
  4. EFFEXOR [Concomitant]
  5. LEVOTHYROXINE SODIUM [Concomitant]
  6. HYDROCODONE [Concomitant]
  7. ACETAMINOPHEN+PSEUDOEPHEDRINE [Concomitant]
  8. ASPIRIN [Concomitant]
  9. ALBUTEROL [Concomitant]
  10. ALUMINUM MAGNESIUM HYDROXIDE [Concomitant]
  11. BISMUTH SUBSALICYLATE [Concomitant]
  12. CLINDAMYCIN PHOSPHATE [Concomitant]
  13. DIPHENOXYLATE HCL + ATROPINE SULFATE [Concomitant]
  14. MORPHINE [Concomitant]
  15. PHENAZOPYRIDINE HCL TAB [Concomitant]
  16. PROCHLORPERAZINE [Concomitant]
  17. TIOTROPIUM BROMIDE [Concomitant]
  18. ZOLPIDEM TARTRATE [Concomitant]

REACTIONS (8)
  - ABDOMINAL PAIN [None]
  - ALANINE AMINOTRANSFERASE INCREASED [None]
  - ASPARTATE AMINOTRANSFERASE INCREASED [None]
  - CHOLELITHIASIS [None]
  - DIARRHOEA [None]
  - GASTROINTESTINAL DISORDER [None]
  - NAUSEA [None]
  - VOMITING [None]
